FAERS Safety Report 9115748 (Version 1)
Quarter: 2013Q1

REPORT INFORMATION
  Report Type: Spontaneous
  Country: BR (occurrence: BR)
  Receive Date: 20130225
  Receipt Date: 20130225
  Transmission Date: 20140127
  Serious: Yes (Hospitalization)
  Sender: FDA-Public Use
  Company Number: BR-BAYER-2013-022587

PATIENT
  Sex: Male

DRUGS (1)
  1. PROMIRA [Suspect]
     Dosage: UNK
     Route: 048

REACTIONS (3)
  - Poisoning [Unknown]
  - Local swelling [Unknown]
  - Pruritus [Unknown]
